FAERS Safety Report 17536363 (Version 1)
Quarter: 2020Q1

REPORT INFORMATION
  Report Type: Spontaneous
  Country: IT (occurrence: IT)
  Receive Date: 20200313
  Receipt Date: 20200313
  Transmission Date: 20200409
  Serious: Yes (Hospitalization, Other)
  Sender: FDA-Public Use
  Company Number: IT-SA-2020SA060522

PATIENT
  Age: 33 Year
  Sex: Female

DRUGS (3)
  1. PIPERACILLIN/TAZOBACTAM [Concomitant]
     Active Substance: PIPERACILLIN SODIUM\TAZOBACTAM SODIUM
     Route: 042
  2. ALEMTUZUMAB [Suspect]
     Active Substance: ALEMTUZUMAB
     Indication: RELAPSING-REMITTING MULTIPLE SCLEROSIS
     Dosage: UNK
     Dates: start: 2017, end: 2017
  3. ALEMTUZUMAB [Suspect]
     Active Substance: ALEMTUZUMAB
     Dosage: UNK
     Dates: start: 2016, end: 2016

REACTIONS (8)
  - Eye pain [Recovering/Resolving]
  - Restlessness [Recovering/Resolving]
  - Basedow^s disease [Recovering/Resolving]
  - Pyrexia [Unknown]
  - Palpitations [Recovering/Resolving]
  - Parvovirus B19 infection [Recovering/Resolving]
  - Agranulocytosis [Recovered/Resolved]
  - Malaise [Unknown]
